FAERS Safety Report 21030471 (Version 3)
Quarter: 2022Q4

REPORT INFORMATION
  Report Type: Report from Study
  Country: MX (occurrence: MX)
  Receive Date: 20220701
  Receipt Date: 20221123
  Transmission Date: 20230113
  Serious: Yes (Other)
  Sender: FDA-Public Use
  Company Number: MX-JNJFOC-20220650563

PATIENT
  Age: 69 Year
  Sex: Female
  Weight: 57 kg

DRUGS (1)
  1. SIMPONI [Suspect]
     Active Substance: GOLIMUMAB
     Indication: Rheumatoid arthritis
     Route: 058
     Dates: start: 20190128, end: 20220516

REACTIONS (4)
  - Localised infection [Unknown]
  - Anaemia [Recovered/Resolved]
  - Decreased immune responsiveness [Unknown]
  - Wound [Not Recovered/Not Resolved]

NARRATIVE: CASE EVENT DATE: 20220101
